FAERS Safety Report 17037176 (Version 2)
Quarter: 2020Q2

REPORT INFORMATION
  Report Type: Spontaneous
  Country: US (occurrence: US)
  Receive Date: 20191115
  Receipt Date: 20200501
  Transmission Date: 20200713
  Serious: Yes (Other)
  Sender: FDA-Public Use
  Company Number: US-JNJFOC-20191111648

PATIENT
  Age: 23 Year
  Sex: Female

DRUGS (9)
  1. CELART [Concomitant]
  2. VERON [Concomitant]
  3. ATIVAN [Concomitant]
     Active Substance: LORAZEPAM
  4. SPRAVATO [Suspect]
     Active Substance: ESKETAMINE
     Indication: DEPRESSION
     Dates: start: 20191017, end: 20200128
  5. TRILEPTAL [Concomitant]
     Active Substance: OXCARBAZEPINE
  6. TOPAMAX [Concomitant]
     Active Substance: TOPIRAMATE
  7. CLARITIN [Concomitant]
     Active Substance: LORATADINE
     Indication: ASTHMA
  8. SINGULAIR [Concomitant]
     Active Substance: MONTELUKAST SODIUM
     Indication: ASTHMA
  9. SYNTHROID [Concomitant]
     Active Substance: LEVOTHYROXINE SODIUM
     Indication: HYPOTHYROIDISM

REACTIONS (2)
  - Seizure [Recovered/Resolved]
  - Product dose omission [Unknown]

NARRATIVE: CASE EVENT DATE: 20191106
